FAERS Safety Report 14964494 (Version 1)
Quarter: 2018Q2

REPORT INFORMATION
  Report Type: Spontaneous
  Country: US (occurrence: US)
  Receive Date: 20180601
  Receipt Date: 20180601
  Transmission Date: 20180711
  Serious: Yes (Hospitalization)
  Sender: FDA-Public Use
  Company Number: US-VIFOR (INTERNATIONAL) INC.-VIT-2018-05152

PATIENT
  Age: 72 Year
  Sex: Male

DRUGS (17)
  1. VELTASSA [Suspect]
     Active Substance: PATIROMER
     Indication: HYPERKALAEMIA
     Route: 048
  2. FISH OIL BURP-LESS [Concomitant]
  3. METOPROLOL SUCCINATE. [Concomitant]
     Active Substance: METOPROLOL SUCCINATE
  4. AMLODIPINE BESILATE [Concomitant]
     Active Substance: AMLODIPINE BESYLATE
  5. ACETYLSALICYLIC ACID [Concomitant]
     Active Substance: ASPIRIN
  6. ALLIUM SATIVUM [Concomitant]
  7. SODIUM BICARBONATE. [Concomitant]
     Active Substance: SODIUM BICARBONATE
  8. COENZYME Q10 [Concomitant]
     Active Substance: UBIDECARENONE
  9. ADULT NITROSTAT [Concomitant]
  10. ULORIC [Concomitant]
     Active Substance: FEBUXOSTAT
  11. ISOSORBIDE DINITRATE. [Concomitant]
     Active Substance: ISOSORBIDE DINITRATE
  12. VITAMINS NOS [Concomitant]
     Active Substance: VITAMINS
  13. CLOPIDOGREL BISULFATE. [Concomitant]
     Active Substance: CLOPIDOGREL BISULFATE
  14. LANTUS [Concomitant]
     Active Substance: INSULIN GLARGINE
  15. NOVOLIN 70/30 [Concomitant]
     Active Substance: INSULIN HUMAN
  16. LISINOPRIL. [Concomitant]
     Active Substance: LISINOPRIL
  17. COLECALCIFEROL [Concomitant]
     Active Substance: CHOLECALCIFEROL

REACTIONS (2)
  - Dialysis [Unknown]
  - Dizziness [Unknown]

NARRATIVE: CASE EVENT DATE: 20180523
